FAERS Safety Report 12768934 (Version 1)
Quarter: 2016Q3

REPORT INFORMATION
  Report Type: Spontaneous
  Country: US (occurrence: US)
  Receive Date: 20160921
  Receipt Date: 20160921
  Transmission Date: 20161109
  Serious: No
  Sender: FDA-Public Use
  Company Number: US-JAZZ-2016-US-010417

PATIENT
  Age: 30 Year
  Sex: Female

DRUGS (11)
  1. SUMATRIPTAN. [Concomitant]
     Active Substance: SUMATRIPTAN
  2. NEUPRO [Concomitant]
     Active Substance: ROTIGOTINE
  3. ZANAFLEX [Concomitant]
     Active Substance: TIZANIDINE HYDROCHLORIDE
  4. XYREM [Suspect]
     Active Substance: SODIUM OXYBATE
     Indication: NARCOLEPSY
     Dosage: 2.25 G, BID
     Route: 048
     Dates: start: 20160601
  5. IBUPROFEN. [Concomitant]
     Active Substance: IBUPROFEN
  6. TYLENOL [Concomitant]
     Active Substance: ACETAMINOPHEN
  7. ERGOCALCIFEROL. [Concomitant]
     Active Substance: ERGOCALCIFEROL
  8. SYNTHROID [Concomitant]
     Active Substance: LEVOTHYROXINE SODIUM
  9. XYREM [Suspect]
     Active Substance: SODIUM OXYBATE
     Indication: CATAPLEXY
  10. DESONATE [Concomitant]
     Active Substance: DESONIDE
  11. NAPROXEN. [Concomitant]
     Active Substance: NAPROXEN

REACTIONS (1)
  - Heart rate increased [Recovered/Resolved]

NARRATIVE: CASE EVENT DATE: 20160602
